FAERS Safety Report 13107511 (Version 2)
Quarter: 2017Q1

REPORT INFORMATION
  Report Type: Report from Study
  Country: None (occurrence: US)
  Receive Date: 20170112
  Receipt Date: 20170221
  Transmission Date: 20170428
  Serious: Yes (Hospitalization)
  Sender: FDA-Public Use
  Company Number: US-ABBVIE-17K-163-1832323-00

PATIENT
  Age: 39 Year
  Sex: Female

DRUGS (2)
  1. MINERAL OIL. [Concomitant]
     Active Substance: MINERAL OIL
     Indication: PRODUCT USED FOR UNKNOWN INDICATION
  2. HUMIRA [Suspect]
     Active Substance: ADALIMUMAB
     Indication: CROHN^S DISEASE
     Route: 058
     Dates: start: 201610, end: 201610

REACTIONS (4)
  - Hospitalisation [Unknown]
  - Oesophageal oedema [Recovered/Resolved]
  - Drug hypersensitivity [Recovered/Resolved with Sequelae]
  - Dyspnoea [Recovered/Resolved]

NARRATIVE: CASE EVENT DATE: 201610
